FAERS Safety Report 10461528 (Version 2)
Quarter: 2015Q4

REPORT INFORMATION
  Report Type: Spontaneous
  Country: US (occurrence: US)
  Receive Date: 20140918
  Receipt Date: 20151211
  Transmission Date: 20160304
  Serious: Yes (Death, Hospitalization, Other)
  Sender: FDA-Public Use
  Company Number: US-BAYER-2014-139633

PATIENT
  Age: 38 Year
  Sex: Female

DRUGS (4)
  1. YAZ [Suspect]
     Active Substance: DROSPIRENONE\ETHINYL ESTRADIOL
     Dosage: UNK
  2. LIPITOR [Concomitant]
     Active Substance: ATORVASTATIN CALCIUM
     Indication: LOW DENSITY LIPOPROTEIN INCREASED
  3. TOPAMAX [Concomitant]
     Active Substance: TOPIRAMATE
  4. YASMIN [Suspect]
     Active Substance: DROSPIRENONE\ETHINYL ESTRADIOL

REACTIONS (6)
  - Cerebrovascular accident [None]
  - Cerebrovascular accident [None]
  - Pain [None]
  - Injury [None]
  - Death [Fatal]
  - Deep vein thrombosis [None]

NARRATIVE: CASE EVENT DATE: 200502
